FAERS Safety Report 7591930-0 (Version None)
Quarter: 2011Q2

REPORT INFORMATION
  Report Type: 
  Country: None (occurrence: None)
  Receive Date: 20110606
  Receipt Date: 20110130
  Transmission Date: 20111010
  Serious: Yes (Hospitalization)
  Sender: FDA-Public Use
  Company Number: US-SEPTODONT-201100018

PATIENT
  Age: 37 Year
  Sex: Female
  Weight: 55.7 kg

DRUGS (1)
  1. SEPTOCAINE [Suspect]
     Indication: LOCAL ANAESTHESIA
     Dosage: DENTAL
     Route: 004

REACTIONS (10)
  - HEADACHE [None]
  - CHILLS [None]
  - DYSGEUSIA [None]
  - HYPOAESTHESIA [None]
  - DIARRHOEA [None]
  - DIZZINESS [None]
  - NAUSEA [None]
  - THIRST [None]
  - NERVOUSNESS [None]
  - ABDOMINAL DISCOMFORT [None]
